FAERS Safety Report 11906717 (Version 1)
Quarter: 2016Q1

REPORT INFORMATION
  Report Type: Spontaneous
  Country: US (occurrence: None)
  Receive Date: 20160108
  Receipt Date: 20160108
  Transmission Date: 20160526
  Serious: Yes (Life-Threatening, Disabling, Other)
  Sender: FDA-Public Use
  Company Number: None

PATIENT
  Age: 36 Year
  Sex: Male
  Weight: 107.96 kg

DRUGS (6)
  1. VENLAFAXINE HCL ER 24 HR 150 MG TEVA PHARM [Suspect]
     Active Substance: VENLAFAXINE HYDROCHLORIDE
     Indication: MAJOR DEPRESSION
     Route: 048
     Dates: start: 20151229, end: 20160106
  2. MIRTAZAPINE. [Concomitant]
     Active Substance: MIRTAZAPINE
  3. EFFEXOR XR [Concomitant]
     Active Substance: VENLAFAXINE HYDROCHLORIDE
  4. LAMOTRIGINE. [Concomitant]
     Active Substance: LAMOTRIGINE
  5. KLONOPIN [Concomitant]
     Active Substance: CLONAZEPAM
  6. ATENOLOL. [Concomitant]
     Active Substance: ATENOLOL

REACTIONS (17)
  - Crying [None]
  - Irritability [None]
  - Eating disorder [None]
  - Nausea [None]
  - Drug withdrawal syndrome [None]
  - Bone pain [None]
  - Product substitution issue [None]
  - Vomiting [None]
  - Impaired work ability [None]
  - Hypersomnia [None]
  - Depression [None]
  - Confusional state [None]
  - Suicidal ideation [None]
  - Paraesthesia [None]
  - Dizziness [None]
  - Feeling cold [None]
  - Social avoidant behaviour [None]

NARRATIVE: CASE EVENT DATE: 20151229
